FAERS Safety Report 6427628-1 (Version None)
Quarter: 2009Q4

REPORT INFORMATION
  Report Type: 
  Country: None (occurrence: None)
  Receive Date: 20091104
  Receipt Date: 20091022
  Transmission Date: 20100525
  Serious: Yes (Hospitalization)
  Sender: FDA-Public Use
  Company Number: FR-GENENTECH-290782

PATIENT
  Sex: Female

DRUGS (4)
  1. MABTHERA [Suspect]
     Indication: MUSCULOSKELETAL PAIN
     Dosage: 1 G, UNK
     Route: 042
     Dates: start: 20090415, end: 20090730
  2. SOLU-MEDROL [Suspect]
     Indication: PREMEDICATION
     Dosage: 500 MG, UNK
     Route: 042
     Dates: start: 20090415, end: 20090415
  3. CORTICOSTEROIDS (UNK INGREDIENTS) [Concomitant]
     Indication: DRUG USE FOR UNKNOWN INDICATION
  4. ANTIDEPRESSANTS [Concomitant]
     Indication: DRUG USE FOR UNKNOWN INDICATION

REACTIONS (1)
  - SUICIDE ATTEMPT [None]
